FAERS Safety Report 21637877 (Version 1)
Quarter: 2022Q4

REPORT INFORMATION
  Report Type: Spontaneous
  Country: CO (occurrence: CO)
  Receive Date: 20221124
  Receipt Date: 20221124
  Transmission Date: 20230113
  Serious: Yes (Other)
  Sender: FDA-Public Use
  Company Number: CO-SUN PHARMACEUTICAL INDUSTRIES LTD-2022RR-365427

PATIENT
  Age: 32 Year
  Sex: Female

DRUGS (4)
  1. FLUVOXAMINE [Suspect]
     Active Substance: FLUVOXAMINE
     Indication: Obsessive-compulsive disorder
     Dosage: 200 MILLIGRAM, DAILY
  2. PAROXETINE [Suspect]
     Active Substance: PAROXETINE
     Indication: Obsessive-compulsive disorder
     Dosage: 50 MILLIGRAM, DAILY
  3. FLUOXETINE [Suspect]
     Active Substance: FLUOXETINE HYDROCHLORIDE
     Indication: Obsessive-compulsive disorder
     Dosage: 60 MILLIGRAM, DAILY
     Route: 065
  4. FLUOXETINE [Suspect]
     Active Substance: FLUOXETINE HYDROCHLORIDE
     Dosage: 80 MILLIGRAM, DAILY
     Route: 065

REACTIONS (5)
  - Drug ineffective [Unknown]
  - Somnolence [Unknown]
  - Dizziness [Unknown]
  - Headache [Unknown]
  - Therapeutic product effect incomplete [Unknown]
